FAERS Safety Report 11864981 (Version 2)
Quarter: 2015Q4

REPORT INFORMATION
  Report Type: Spontaneous
  Country: CA (occurrence: CA)
  Receive Date: 20151223
  Receipt Date: 20151223
  Transmission Date: 20160305
  Serious: Yes (Hospitalization, Other)
  Sender: FDA-Public Use
  Company Number: CA-BAYER-2015-491224

PATIENT
  Age: 62 Year
  Sex: Male
  Weight: 58.5 kg

DRUGS (7)
  1. COUMADIN [Interacting]
     Active Substance: WARFARIN SODIUM
     Indication: ACUTE CORONARY SYNDROME
     Dosage: UNK
     Route: 048
     Dates: start: 20111201, end: 20120112
  2. PLAVIX [Interacting]
     Active Substance: CLOPIDOGREL BISULFATE
     Indication: ACUTE CORONARY SYNDROME
     Dosage: UNK
     Route: 048
     Dates: start: 20111201, end: 20120112
  3. CRESTOR [Concomitant]
     Active Substance: ROSUVASTATIN CALCIUM
     Indication: ACUTE CORONARY SYNDROME
     Dosage: UNK
     Route: 048
     Dates: start: 20111201
  4. ASPIRIN. [Interacting]
     Active Substance: ASPIRIN
     Indication: ACUTE CORONARY SYNDROME
     Dosage: UNK
     Route: 048
     Dates: start: 20121219
  5. PLAVIX [Interacting]
     Active Substance: CLOPIDOGREL BISULFATE
     Indication: ACUTE CORONARY SYNDROME
     Dosage: UNK
     Route: 048
     Dates: start: 20120119
  6. ASPIRIN. [Suspect]
     Active Substance: ASPIRIN
     Indication: ACUTE CORONARY SYNDROME
     Dosage: UNK
     Route: 048
     Dates: start: 20111201, end: 20120112
  7. LOPRESSOR [Concomitant]
     Active Substance: METOPROLOL TARTRATE
     Indication: ACUTE CORONARY SYNDROME
     Dosage: UNK
     Route: 048
     Dates: start: 20111201

REACTIONS (8)
  - Asthenia [None]
  - Haemoglobin decreased [None]
  - Melaena [Recovered/Resolved]
  - Dizziness [None]
  - Labelled drug-drug interaction medication error [None]
  - Haemoptysis [None]
  - Dyspnoea [None]
  - Dysgeusia [None]

NARRATIVE: CASE EVENT DATE: 20120108
